FAERS Safety Report 8135298-X (Version None)
Quarter: 2012Q1

REPORT INFORMATION
  Report Type: 
  Country: None (occurrence: None)
  Receive Date: 20120214
  Receipt Date: 20120210
  Transmission Date: 20120608
  Serious: Yes (Other)
  Sender: FDA-Public Use
  Company Number: US-PFIZER INC-2012006523

PATIENT
  Sex: Male
  Weight: 96.145 kg

DRUGS (3)
  1. XALATAN [Suspect]
     Dosage: 0.005 %, DAILY
     Route: 047
  2. PRILOSEC [Concomitant]
     Indication: DYSPEPSIA
     Dosage: UNK
  3. XALATAN [Suspect]
     Indication: GLAUCOMA
     Dosage: UNK, 1X/DAY
     Route: 047
     Dates: start: 20060101

REACTIONS (4)
  - BLOOD GLUCOSE INCREASED [None]
  - BLOOD CHOLESTEROL INCREASED [None]
  - DEPRESSION [None]
  - TYPE 2 DIABETES MELLITUS [None]
